FAERS Safety Report 6664577-8 (Version None)
Quarter: 2010Q2

REPORT INFORMATION
  Report Type: 
  Country: None (occurrence: None)
  Receive Date: 20100401
  Receipt Date: 20100322
  Transmission Date: 20101027
  Serious: Yes (Hospitalization, Other)
  Sender: FDA-Public Use
  Company Number: BR-ABBOTT-10P-020-0620913-00

PATIENT
  Sex: Female
  Weight: 64 kg

DRUGS (10)
  1. HUMIRA [Suspect]
     Indication: RHEUMATOID ARTHRITIS
     Route: 058
     Dates: start: 20080101
  2. TRAMADOL HYDROCHLORIDE AND ACETAMINOPHEN [Concomitant]
     Indication: PAIN
     Route: 048
  3. METICORTEN [Concomitant]
     Indication: ARTHRALGIA
     Route: 048
  4. ATENOLOL [Concomitant]
     Indication: BLOOD PRESSURE
     Route: 048
  5. CLORANA [Concomitant]
     Indication: DIURETIC THERAPY
     Route: 048
  6. AMITRIPTYLINE HYDROCHLORIDE [Concomitant]
     Indication: ANTIDEPRESSANT THERAPY
     Route: 048
  7. FRONTAL [Concomitant]
     Indication: PAIN
     Route: 048
  8. CAPTOPRIL [Concomitant]
     Indication: BLOOD PRESSURE INCREASED
     Route: 048
     Dates: start: 20090101
  9. PARACETAMOL WITH CODEINE PHOSPHATE [Concomitant]
     Indication: PAIN
     Route: 048
     Dates: start: 20090501
  10. OMEPRAZOLE [Concomitant]
     Indication: GASTRIC DISORDER
     Route: 048

REACTIONS (21)
  - ABDOMINAL DISCOMFORT [None]
  - ABDOMINAL DISTENSION [None]
  - ABDOMINAL PAIN [None]
  - CERVICAL VERTEBRAL FRACTURE [None]
  - DIZZINESS [None]
  - DYSURIA [None]
  - FALL [None]
  - FAT TISSUE INCREASED [None]
  - FATIGUE [None]
  - GASTRITIS [None]
  - HIP FRACTURE [None]
  - HYPERSENSITIVITY [None]
  - PAIN IN EXTREMITY [None]
  - PRURITUS [None]
  - SCIATICA [None]
  - SOMNOLENCE [None]
  - SPINAL FRACTURE [None]
  - SWELLING [None]
  - SWELLING FACE [None]
  - THROMBOSIS [None]
  - WEIGHT INCREASED [None]
